FAERS Safety Report 11258088 (Version 1)
Quarter: 2015Q3

REPORT INFORMATION
  Report Type: Spontaneous
  Country: FR (occurrence: FR)
  Receive Date: 20150710
  Receipt Date: 20150710
  Transmission Date: 20151125
  Serious: Yes (Other)
  Sender: FDA-Public Use
  Company Number: FR-ROCHE-1606280

PATIENT
  Age: 82 Year
  Sex: Female

DRUGS (8)
  1. ESIDREX [Concomitant]
     Active Substance: HYDROCHLOROTHIAZIDE
     Route: 065
  2. LEXOMIL [Concomitant]
     Active Substance: BROMAZEPAM
     Indication: ANXIETY
     Route: 065
  3. SMECTA [Concomitant]
     Active Substance: MONTMORILLONITE
     Dosage: IF REQUIRED
     Route: 065
  4. TAMIFLU [Suspect]
     Active Substance: OSELTAMIVIR PHOSPHATE
     Indication: INFLUENZA
     Route: 048
     Dates: start: 20150130, end: 20150202
  5. DOLIPRANE [Concomitant]
     Active Substance: ACETAMINOPHEN
     Route: 065
  6. LASILIX [Concomitant]
     Active Substance: FUROSEMIDE
  7. LOXEN (FRANCE) [Concomitant]
     Active Substance: NICARDIPINE HYDROCHLORIDE
     Route: 065
  8. KERLONE [Concomitant]
     Active Substance: BETAXOLOL HYDROCHLORIDE
     Route: 065

REACTIONS (2)
  - Malaise [Recovered/Resolved]
  - Epilepsy [Recovered/Resolved]

NARRATIVE: CASE EVENT DATE: 20150202
